FAERS Safety Report 15451158 (Version 4)
Quarter: 2018Q4

REPORT INFORMATION
  Report Type: Report from Study
  Country: US (occurrence: US)
  Receive Date: 20181001
  Receipt Date: 20181212
  Transmission Date: 20190204
  Serious: Yes (Other)
  Sender: FDA-Public Use
  Company Number: US-PFIZER INC-2018391907

PATIENT
  Age: 70 Year
  Sex: Female

DRUGS (3)
  1. LYNPARZA [Suspect]
     Active Substance: OLAPARIB
     Indication: OVARIAN CANCER
     Dosage: 300 MG, 2X/DAY (EVERY 12 HOURS)
     Route: 048
     Dates: start: 20180527
  2. RAMIPRIL. [Suspect]
     Active Substance: RAMIPRIL
     Dosage: 300 MG, 2X/DAY (Q12H)
     Route: 048
     Dates: start: 20180527
  3. LYNPARZA [Suspect]
     Active Substance: OLAPARIB
     Dosage: 200 MG, 2X/DAY (EVERY 12 HOURS)
     Route: 048
     Dates: start: 20180818

REACTIONS (13)
  - Asthenia [Recovering/Resolving]
  - Renal disorder [Unknown]
  - Cyst [Unknown]
  - Drug intolerance [Unknown]
  - Blood creatinine increased [Unknown]
  - Nausea [Unknown]
  - Anaemia [Unknown]
  - Decreased appetite [Unknown]
  - Diarrhoea [Unknown]
  - Fatigue [Unknown]
  - Red blood cell count decreased [Unknown]
  - Blood potassium increased [Unknown]
  - Therapy cessation [Unknown]
